FAERS Safety Report 13776463 (Version 2)
Quarter: 2017Q4

REPORT INFORMATION
  Report Type: Report from Study
  Country: CA (occurrence: CA)
  Receive Date: 20170720
  Receipt Date: 20171110
  Transmission Date: 20180320
  Serious: Yes (Hospitalization)
  Sender: FDA-Public Use
  Company Number: CA-ACTELION-A-US2017-155264

PATIENT
  Age: 43 Year
  Sex: Female

DRUGS (13)
  1. PANTOLOC [Concomitant]
     Active Substance: PANTOPRAZOLE SODIUM
  2. CIPRALEX [Concomitant]
     Active Substance: ESCITALOPRAM OXALATE
  3. HYDROMORPH [Concomitant]
     Active Substance: HYDROMORPHONE
  4. MAGNESIUM [Concomitant]
     Active Substance: MAGNESIUM
  5. OPSUMIT [Suspect]
     Active Substance: MACITENTAN
     Indication: PULMONARY ARTERIAL HYPERTENSION
     Dosage: 10 MG, QD
     Route: 048
     Dates: start: 20170331
  6. PROBIOTIC [Concomitant]
     Active Substance: PROBIOTICS NOS
  7. DILAUDID [Concomitant]
     Active Substance: HYDROMORPHONE HYDROCHLORIDE
  8. ZOFRAN [Concomitant]
     Active Substance: ONDANSETRON HYDROCHLORIDE
  9. ADCIRCA [Concomitant]
     Active Substance: TADALAFIL
  10. GRAVOL [Concomitant]
     Active Substance: DIMENHYDRINATE
  11. XARELTO [Concomitant]
     Active Substance: RIVAROXABAN
  12. IMOVANE [Concomitant]
     Active Substance: ZOPICLONE
  13. ALLOPURINOL. [Concomitant]
     Active Substance: ALLOPURINOL

REACTIONS (6)
  - Dyspnoea [Not Recovered/Not Resolved]
  - Pyrexia [Not Recovered/Not Resolved]
  - Hypotension [Not Recovered/Not Resolved]
  - Nasal discomfort [Not Recovered/Not Resolved]
  - Sepsis [Not Recovered/Not Resolved]
  - Eye swelling [Not Recovered/Not Resolved]

NARRATIVE: CASE EVENT DATE: 20170711
